FAERS Safety Report 25784055 (Version 1)
Quarter: 2025Q3

REPORT INFORMATION
  Report Type: Other
  Country: CA (occurrence: CA)
  Receive Date: 20250910
  Receipt Date: 20250910
  Transmission Date: 20251021
  Serious: Yes (Hospitalization, Other)
  Sender: CELLTRION
  Company Number: CA-CELLTRION INC.-2025CA031791

PATIENT

DRUGS (4)
  1. ADALIMUMAB [Suspect]
     Active Substance: ADALIMUMAB
     Indication: Sjogren^s syndrome
     Route: 058
  2. ADALIMUMAB [Suspect]
     Active Substance: ADALIMUMAB
     Indication: Rheumatoid arthritis
  3. METHOTREXATE [Suspect]
     Active Substance: METHOTREXATE
     Indication: Sjogren^s syndrome
     Route: 065
  4. METHOTREXATE [Suspect]
     Active Substance: METHOTREXATE
     Indication: Rheumatoid arthritis

REACTIONS (7)
  - Cholestasis [Recovering/Resolving]
  - Granulomatous liver disease [Recovering/Resolving]
  - Hypersensitivity pneumonitis [Recovering/Resolving]
  - Hypertransaminasaemia [Recovering/Resolving]
  - Respiratory failure [Recovering/Resolving]
  - Histoplasmosis disseminated [Recovering/Resolving]
  - Intentional product use issue [Unknown]
